FAERS Safety Report 9407339 (Version 2)
Quarter: 2013Q3

REPORT INFORMATION
  Report Type: Report from Study
  Country: GB (occurrence: GB)
  Receive Date: 20130718
  Receipt Date: 20130911
  Transmission Date: 20140515
  Serious: Yes (Death)
  Sender: FDA-Public Use
  Company Number: GB-PFIZER INC-2013204945

PATIENT
  Sex: Female

DRUGS (21)
  1. TIGECYCLINE [Suspect]
     Indication: PNEUMONIA
     Dosage: 100 MG, SINGLE
     Route: 042
     Dates: start: 20121125, end: 20121125
  2. TIGECYCLINE [Suspect]
     Dosage: 50 MG, 2X/DAY
     Route: 042
     Dates: start: 20121125, end: 20121201
  3. MEROPENEM [Concomitant]
     Indication: CYSTIC FIBROSIS
     Dosage: UNK
     Route: 042
     Dates: start: 20121124
  4. MEROPENEM [Concomitant]
     Indication: PNEUMONIA
  5. OMEPRAZOLE [Concomitant]
     Dosage: UNK
     Route: 042
     Dates: start: 20121125
  6. IPRATROPIUM [Concomitant]
     Dosage: UNK
     Route: 055
     Dates: start: 20121125
  7. SALBUTAMOL [Concomitant]
     Dosage: UNK
     Route: 055
     Dates: start: 20121125
  8. URSODEOXYCHOLIC ACID [Concomitant]
     Dosage: UNK
     Dates: start: 20121125
  9. PARACETAMOL [Concomitant]
     Indication: ANALGESIC THERAPY
     Dosage: UNK
     Route: 048
     Dates: start: 20121129, end: 20121201
  10. PARACETAMOL [Concomitant]
     Dosage: UNK
     Route: 042
     Dates: start: 20121129, end: 20121201
  11. DIGOXIN [Concomitant]
     Dosage: UNK
     Route: 042
     Dates: start: 20121202
  12. LACTULOSE [Concomitant]
     Dosage: UNK
     Dates: start: 20121126
  13. DORNASE ALFA [Concomitant]
     Dosage: UNK
     Dates: start: 20121126
  14. METHOCLOPRAMIDE [Concomitant]
     Dosage: UNK
     Dates: start: 20121127
  15. CREON [Concomitant]
     Dosage: UNK
     Dates: start: 20121127
  16. SENNA [Concomitant]
     Dosage: UNK
     Dates: start: 20121127
  17. VORICONAZOLE [Concomitant]
     Indication: ASPERGILLUS INFECTION
     Dosage: UNK
     Route: 042
     Dates: start: 20121201
  18. PROPOFOL [Concomitant]
     Dosage: UNK
     Route: 041
     Dates: start: 20121124, end: 20121201
  19. ALFENTANIL [Concomitant]
     Dosage: UNK
     Route: 041
     Dates: start: 20121124, end: 20121201
  20. ACTRAPID [Concomitant]
     Indication: DIABETES MELLITUS
     Dosage: UNK
     Route: 041
     Dates: start: 20121125, end: 20121201
  21. NORADRENALINE [Concomitant]
     Dosage: UNK
     Route: 041
     Dates: start: 20121126

REACTIONS (1)
  - Respiratory failure [Fatal]
